FAERS Safety Report 24863569 (Version 1)
Quarter: 2025Q1

REPORT INFORMATION
  Report Type: Spontaneous
  Country: IT (occurrence: IT)
  Receive Date: 20250120
  Receipt Date: 20250120
  Transmission Date: 20250409
  Serious: Yes (Other)
  Sender: AMGEN
  Company Number: IT-AMGEN-ITASP2025007164

PATIENT

DRUGS (10)
  1. FILGRASTIM [Suspect]
     Active Substance: FILGRASTIM
     Indication: Haematopoietic stem cell mobilisation
     Dosage: 5 MICROGRAM/KILOGRAM, QD, ON DAY + 9
     Route: 065
  2. RITUXIMAB [Concomitant]
     Active Substance: RITUXIMAB
  3. CYCLOPHOSPHAMIDE [Concomitant]
     Active Substance: CYCLOPHOSPHAMIDE
  4. VINCRISTINE SULFATE [Concomitant]
     Active Substance: VINCRISTINE SULFATE
  5. CISPLATIN [Concomitant]
     Active Substance: CISPLATIN
  6. DEXAMETHASONE [Concomitant]
     Active Substance: DEXAMETHASONE
     Dosage: 40 MILLIGRAM, QD, 1-4
  7. CYTARABINE [Concomitant]
     Active Substance: CYTARABINE
  8. PLERIXAFOR [Concomitant]
     Active Substance: PLERIXAFOR
     Route: 058
  9. DOXORUBICIN [Concomitant]
     Active Substance: DOXORUBICIN
  10. PREDNISONE [Concomitant]
     Active Substance: PREDNISONE
     Indication: Diffuse large B-cell lymphoma
     Route: 065

REACTIONS (7)
  - Diffuse large B-cell lymphoma recurrent [Unknown]
  - Gastrointestinal toxicity [Unknown]
  - Therapy partial responder [Unknown]
  - Therapy non-responder [Unknown]
  - Hypertransaminasaemia [Unknown]
  - Vomiting [Unknown]
  - Nausea [Unknown]
